FAERS Safety Report 9186539 (Version 1)
Quarter: 2013Q1

REPORT INFORMATION
  Report Type: Spontaneous
  Country: US (occurrence: US)
  Receive Date: 20130325
  Receipt Date: 20130325
  Transmission Date: 20140127
  Serious: No
  Sender: FDA-Public Use
  Company Number: US-B.I. PHARMACEUTICALS,INC./RIDGEFIELD-2013-BI-07333BP

PATIENT
  Sex: Female

DRUGS (8)
  1. PRADAXA [Suspect]
     Indication: ATRIAL FIBRILLATION
     Dosage: 300 MG
     Route: 048
     Dates: start: 201203
  2. WELCHOL [Concomitant]
     Indication: BLOOD CHOLESTEROL INCREASED
     Dosage: 3750 MG
     Route: 048
     Dates: start: 201203
  3. OMEPRAZOLE [Concomitant]
     Indication: GASTROOESOPHAGEAL REFLUX DISEASE
     Dosage: 20 MG
     Route: 048
  4. METHIMAZOLE [Concomitant]
     Dosage: 2.5 MG
     Route: 048
  5. DILTIAZEM [Concomitant]
     Indication: BLOOD PRESSURE
     Dosage: 120 MG
     Route: 048
  6. LOSARTAN [Concomitant]
     Indication: BLOOD PRESSURE
     Dosage: 50 MG
     Route: 048
  7. FAMOTIDINE [Concomitant]
     Dosage: 20 MG
     Route: 048
     Dates: start: 2012
  8. ZETIA [Concomitant]
     Indication: BLOOD CHOLESTEROL INCREASED
     Dosage: 10 MG
     Route: 048
     Dates: start: 201203

REACTIONS (5)
  - Hypoaesthesia [Recovered/Resolved]
  - Hypoaesthesia [Recovered/Resolved]
  - Hypoaesthesia [Recovered/Resolved]
  - Hypoaesthesia [Recovered/Resolved]
  - Dizziness [Recovered/Resolved]
